FAERS Safety Report 10570190 (Version 1)
Quarter: 2014Q4

REPORT INFORMATION
  Report Type: Spontaneous
  Country: US (occurrence: None)
  Receive Date: 20141106
  Receipt Date: 20141106
  Transmission Date: 20150529
  Serious: Yes (Other)
  Sender: FDA-Public Use
  Company Number: None

PATIENT
  Age: 56 Year
  Sex: Female
  Weight: 111.59 kg

DRUGS (1)
  1. METHYLPHENIDATE HYDROCHLORIDE EX 36 MG MALLINCKRODT [Suspect]
     Active Substance: METHYLPHENIDATE HYDROCHLORIDE
     Indication: ATTENTION DEFICIT/HYPERACTIVITY DISORDER
     Dosage: 2 TABLETS, ONCE DAILY , TAKEN BY MOUTH
     Route: 048
     Dates: end: 20141104

REACTIONS (7)
  - Stress [None]
  - Headache [None]
  - Product substitution issue [None]
  - Product quality issue [None]
  - Pain in extremity [None]
  - Drug ineffective [None]
  - Paraesthesia [None]

NARRATIVE: CASE EVENT DATE: 20141001
